FAERS Safety Report 18968449 (Version 2)
Quarter: 2021Q1

REPORT INFORMATION
  Report Type: Spontaneous
  Country: DE (occurrence: DE)
  Receive Date: 20210304
  Receipt Date: 20210324
  Transmission Date: 20210420
  Serious: Yes (Hospitalization, Other)
  Sender: FDA-Public Use
  Company Number: NVSC2021DE012674

PATIENT
  Age: 77 Year
  Sex: Female
  Weight: 62 kg

DRUGS (6)
  1. XARELTO [Concomitant]
     Active Substance: RIVAROXABAN
     Indication: THROMBOSIS PROPHYLAXIS
     Dosage: 10 MG, QD (STOPPED APPROXIMATELY 31 JAN 2021
     Route: 048
     Dates: start: 20201108
  2. PANTOPRAZOLE [Concomitant]
     Active Substance: PANTOPRAZOLE
     Indication: PROPHYLAXIS
     Dosage: 40 MG, QD
     Route: 048
     Dates: start: 20201105
  3. IBU 600 ? 1 A PHARMA [Suspect]
     Active Substance: IBUPROFEN
     Indication: PROPHYLAXIS
     Dosage: 3 DF, QD (3X600 MG) (FOR 6 WEEKS)
     Route: 048
     Dates: start: 20201105, end: 20201221
  4. FERRO?SANOL DUODENAL [Concomitant]
     Active Substance: FERROUS GLYCINE SULFATE
     Indication: BLOOD LOSS ANAEMIA
     Dosage: 200 MG, QD (STOPPED APPROXIMATELY 06 JAN 2021)
     Route: 048
     Dates: start: 20201106, end: 202101
  5. TELMISARTAN. [Concomitant]
     Active Substance: TELMISARTAN
     Indication: HYPERTENSION
     Dosage: 40 MG, QD
     Route: 048
  6. IRON [Concomitant]
     Active Substance: IRON
     Indication: PRODUCT USED FOR UNKNOWN INDICATION
     Dosage: UNK
     Route: 065
     Dates: start: 2020

REACTIONS (5)
  - Drug intolerance [Unknown]
  - Product use in unapproved indication [Unknown]
  - General physical health deterioration [Unknown]
  - Femur fracture [Unknown]
  - Decreased appetite [Unknown]

NARRATIVE: CASE EVENT DATE: 20201105
